FAERS Safety Report 16876436 (Version 1)
Quarter: 2019Q4

REPORT INFORMATION
  Report Type: Spontaneous
  Country: US (occurrence: US)
  Receive Date: 20191002
  Receipt Date: 20191002
  Transmission Date: 20200122
  Serious: Yes (Hospitalization)
  Sender: FDA-Public Use
  Company Number: None

PATIENT
  Age: 57 Year
  Sex: Male
  Weight: 63.3 kg

DRUGS (5)
  1. AMLODIPINE [Concomitant]
     Active Substance: AMLODIPINE BESYLATE
     Dates: start: 20190626
  2. NAPROXEN 500 MG [Concomitant]
     Active Substance: NAPROXEN
     Dates: start: 20190408
  3. EPCLUSA [Suspect]
     Active Substance: SOFOSBUVIR\VELPATASVIR
     Indication: HEPATITIS C
     Route: 048
     Dates: start: 20190725
  4. HYDROCHLOROTHIAZIDE 25 MG [Concomitant]
     Active Substance: HYDROCHLOROTHIAZIDE
     Dates: start: 20190626
  5. LORATADINE 10 MG [Concomitant]
     Active Substance: LORATADINE
     Dates: start: 20180719

REACTIONS (3)
  - Dizziness [None]
  - Nystagmus [None]
  - Bradycardia [None]

NARRATIVE: CASE EVENT DATE: 20190827
